FAERS Safety Report 9373831 (Version 1)
Quarter: 2013Q2

REPORT INFORMATION
  Report Type: Spontaneous
  Country: AU (occurrence: AU)
  Receive Date: 20130628
  Receipt Date: 20130628
  Transmission Date: 20140414
  Serious: Yes (Life-Threatening, Hospitalization, Other)
  Sender: FDA-Public Use
  Company Number: AU-009507513-1306AUS011507

PATIENT
  Age: 75 Year
  Sex: Male
  Weight: 62 kg

DRUGS (20)
  1. VYTORIN [Suspect]
     Dosage: 10/80 DAILY
     Route: 048
  2. AMITRIPTYLINE HYDROCHLORIDE [Concomitant]
     Dosage: 10MG DAILY
  3. ASPIRIN [Concomitant]
     Dosage: 150MG DAILY
  4. BICALUTAMIDE [Concomitant]
     Dosage: 50 MG, UNK
  5. BUDESONIDE (+) FORMOTEROL FUMARATE [Concomitant]
     Dosage: 400 MICROGRAM, UNK
  6. CARVEDILOL [Concomitant]
     Dosage: 12.5MG DAILY
  7. DABIGATRAN [Concomitant]
     Dosage: 220MG DAILY
  8. DARBEPOETIN ALFA [Concomitant]
     Dosage: 20 MICROGRAM, QM
  9. DIGOXIN [Concomitant]
     Dosage: 62.5MICROGRAM  DAILY
  10. EZETIMIBE [Concomitant]
     Dosage: 10 MG, UNK
  11. EZETIMIBE [Concomitant]
     Dosage: 10 MG, UNK
     Dates: start: 20130314, end: 20130408
  12. FUROSEMIDE [Concomitant]
     Dosage: 20MG DAILLY
  13. GOSERELIN ACETATE [Concomitant]
     Dosage: 10.8 MG, CYCLICAL
  14. MAGNESIUM ASPARTATE [Concomitant]
     Dosage: 100MG DAILY
  15. VITAMINS (UNSPECIFIED) [Concomitant]
     Dosage: DAILY
  16. PANTOPRAZOLE [Concomitant]
     Dosage: 40MG DAILY
  17. RAMIPRIL [Concomitant]
     Dosage: 5MG DAILY
     Dates: end: 20130408
  18. ROSUVASTATIN CALCIUM [Concomitant]
  19. SIMVASTATIN [Concomitant]
     Dosage: 80MG DAILY
     Dates: start: 20130314, end: 20130408
  20. SIMVASTATIN [Concomitant]
     Dosage: 80 MG, UNK

REACTIONS (2)
  - Renal failure acute [Not Recovered/Not Resolved]
  - Renal failure acute [Not Recovered/Not Resolved]
